FAERS Safety Report 11243600 (Version 1)
Quarter: 2015Q3

REPORT INFORMATION
  Report Type: Spontaneous
  Country: US (occurrence: None)
  Receive Date: 20150702
  Receipt Date: 20150702
  Transmission Date: 20151125
  Serious: Yes (Life-Threatening, Hospitalization, Disabling)
  Sender: FDA-Public Use
  Company Number: None

PATIENT
  Age: 63 Year
  Sex: Female
  Weight: 56.7 kg

DRUGS (4)
  1. CIPROFLOXACIN. [Suspect]
     Active Substance: CIPROFLOXACIN
     Indication: CYSTITIS
     Route: 048
     Dates: start: 20150509, end: 20150514
  2. WOMAN^S MULTIVITAMIN [Concomitant]
  3. VITAMIN D [Concomitant]
     Active Substance: CHOLECALCIFEROL
  4. IRON [Concomitant]
     Active Substance: IRON

REACTIONS (14)
  - Pyrexia [None]
  - Crying [None]
  - Pain [None]
  - Blood glucose increased [None]
  - Heart rate increased [None]
  - Anaemia [None]
  - Hepatic enzyme increased [None]
  - Asthenia [None]
  - Headache [None]
  - Pain in extremity [None]
  - Decreased appetite [None]
  - Weight decreased [None]
  - Fatigue [None]
  - Neck pain [None]

NARRATIVE: CASE EVENT DATE: 20150509
